FAERS Safety Report 10242771 (Version 1)
Quarter: 2014Q2

REPORT INFORMATION
  Report Type: Spontaneous
  Country: US (occurrence: US)
  Receive Date: 20140617
  Receipt Date: 20140617
  Transmission Date: 20141212
  Serious: Yes (Hospitalization)
  Sender: FDA-Public Use
  Company Number: US-BAUSCH-BL-2014-002760

PATIENT
  Age: 78 Year
  Sex: Female

DRUGS (2)
  1. SALBUTAMOL [Suspect]
     Indication: DYSPNOEA
  2. SALBUTAMOL [Suspect]
     Indication: CHEST PAIN

REACTIONS (2)
  - Stress cardiomyopathy [Recovered/Resolved]
  - Intentional overdose [Recovered/Resolved]
